FAERS Safety Report 20225039 (Version 1)
Quarter: 2021Q4

REPORT INFORMATION
  Report Type: Spontaneous
  Country: US (occurrence: US)
  Receive Date: 20211223
  Receipt Date: 20211223
  Transmission Date: 20220303
  Serious: No
  Sender: FDA-Public Use
  Company Number: US-SECURA BIO, INC.-2021US002776

PATIENT
  Age: 64 Year
  Sex: Male

DRUGS (2)
  1. COPIKTRA [Suspect]
     Active Substance: DUVELISIB
     Indication: Product used for unknown indication
     Dosage: UNK
     Route: 048
  2. COPIKTRA [Suspect]
     Active Substance: DUVELISIB
     Dosage: UNK
     Route: 048

REACTIONS (6)
  - Herpes zoster [Recovered/Resolved]
  - Fatigue [Unknown]
  - Appetite disorder [Unknown]
  - Weight decreased [Unknown]
  - Nausea [Unknown]
  - Disease progression [Unknown]

NARRATIVE: CASE EVENT DATE: 20210526
